FAERS Safety Report 7276717-0 (Version None)
Quarter: 2011Q1

REPORT INFORMATION
  Report Type: 
  Country: None (occurrence: None)
  Receive Date: 20110204
  Receipt Date: 20110131
  Transmission Date: 20110831
  Serious: Yes (Death, Hospitalization, Other)
  Sender: FDA-Public Use
  Company Number: FR-PFIZER INC-2011023107

PATIENT
  Age: 76 Year
  Sex: Male

DRUGS (1)
  1. TEMSIROLIMUS [Suspect]

REACTIONS (2)
  - PYOPNEUMOTHORAX [None]
  - ACUTE RESPIRATORY DISTRESS SYNDROME [None]
